FAERS Safety Report 23665002 (Version 1)
Quarter: 2024Q1

REPORT INFORMATION
  Report Type: Spontaneous
  Country: GB (occurrence: GB)
  Receive Date: 20240322
  Receipt Date: 20240322
  Transmission Date: 20240409
  Serious: Yes (Disabling, Other)
  Sender: FDA-Public Use
  Company Number: None

PATIENT
  Age: 56 Year
  Sex: Male
  Weight: 122.3 kg

DRUGS (7)
  1. CIPROFLOXACIN HYDROCHLORIDE [Suspect]
     Active Substance: CIPROFLOXACIN HYDROCHLORIDE
     Dosage: 1 DF, BID
  2. AMITRIPTYLINE [Concomitant]
     Active Substance: AMITRIPTYLINE
     Dosage: 1 DF, QD
     Dates: start: 20240307
  3. AMOXICILLIN\CLAVULANIC ACID [Concomitant]
     Active Substance: AMOXICILLIN\CLAVULANIC ACID
     Indication: Urinary retention
     Dosage: 1 DF, TID (4 WEEKS AS PER UROLOGIST)
     Dates: start: 20240202, end: 20240302
  4. DIAZEPAM [Concomitant]
     Active Substance: DIAZEPAM
     Dosage: 1 DF, QD
     Dates: start: 20240307
  5. EZETIMIBE [Concomitant]
     Active Substance: EZETIMIBE
     Dosage: 1 DF, QD
     Dates: start: 20240105, end: 20240217
  6. PIROXICAM [Concomitant]
     Active Substance: PIROXICAM
     Dosage: 100 G, UNK
     Dates: start: 20240307
  7. TAMSULOSIN [Concomitant]
     Active Substance: TAMSULOSIN
     Indication: Urinary retention
     Dosage: 1 DF, QD
     Dates: start: 20240202

REACTIONS (2)
  - Myopathy toxic [Not Recovered/Not Resolved]
  - Asthenia [None]
